FAERS Safety Report 16819844 (Version 2)
Quarter: 2019Q3

REPORT INFORMATION
  Report Type: Spontaneous
  Country: KR (occurrence: KR)
  Receive Date: 20190917
  Receipt Date: 20190923
  Transmission Date: 20191005
  Serious: Yes (Other)
  Sender: FDA-Public Use
  Company Number: PHHY2019KR211194

PATIENT
  Sex: Female

DRUGS (16)
  1. TRAMETINIB [Suspect]
     Active Substance: TRAMETINIB
     Indication: MALIGNANT MELANOMA
     Dosage: 2 MG, QD
     Route: 048
     Dates: start: 20190813
  2. DUROC [Concomitant]
     Dosage: 200 MG, P.C (30MIN AFTER BREAKFAST) FOR 35 DAYS
     Route: 048
  3. FAMOTIDINE. [Concomitant]
     Active Substance: FAMOTIDINE
     Indication: PRODUCT USED FOR UNKNOWN INDICATION
     Dosage: 20 MG, P.C (30MIN AFTER BREAKFAST) FOR 35 DAYS
     Route: 048
  4. CELOX [Concomitant]
     Indication: PRODUCT USED FOR UNKNOWN INDICATION
     Dosage: 200 MG, P.C (30MIN AFTER BREAKFAST) FOR 35 DAYS
     Route: 048
  5. ATORVASTATIN [Concomitant]
     Active Substance: ATORVASTATIN
     Indication: PRODUCT USED FOR UNKNOWN INDICATION
     Dosage: 20 MG, P.C (30MIN AFTER BREAKFAST) FOR 35 DAYS
     Route: 048
  6. GINKGO [Concomitant]
     Active Substance: GINKGO
     Indication: PRODUCT USED FOR UNKNOWN INDICATION
     Dosage: 80 MG, P.C (30MIN AFTER BREAKFAST) FOR 35 DAYS
     Route: 048
  7. SOLONDO [Concomitant]
     Active Substance: PREDNISOLONE
     Indication: LUPUS NEPHRITIS
     Dosage: 5 MG, P.C (30MIN AFTER BREAKFAST) FOR 35 DAYS
     Route: 048
  8. AZATHIOPRINE. [Concomitant]
     Active Substance: AZATHIOPRINE
     Dosage: 50 MG, P.C (30MIN AFTER BREAKFAST) FOR 35 DAYS
     Route: 048
  9. FAMOTIDINE. [Concomitant]
     Active Substance: FAMOTIDINE
     Dosage: 20 MG, P.C (30MIN AFTER BREAKFAST) FOR 35 DAYS
     Route: 048
  10. AZATHIOPRINE. [Concomitant]
     Active Substance: AZATHIOPRINE
     Indication: LUPUS NEPHRITIS
     Dosage: 50 MG, P.C (30MIN AFTER BREAKFAST) FOR 35 DAYS
     Route: 048
  11. CELOX [Concomitant]
     Dosage: 200 MG, P.C (30MIN AFTER BREAKFAST) FOR 35 DAYS
     Route: 048
  12. GINKGO [Concomitant]
     Active Substance: GINKGO
     Dosage: 80 MG, P.C (30MIN AFTER BREAKFAST) FOR 35 DAYS
     Route: 048
  13. GASMOTIN [Concomitant]
     Active Substance: MOSAPRIDE CITRATE
     Indication: PRODUCT USED FOR UNKNOWN INDICATION
     Dosage: 5 MG, P.C (30MIN AFTER BREAKFAST) FOR 35 DAYS
     Route: 048
  14. DABRAFENIB [Suspect]
     Active Substance: DABRAFENIB
     Indication: MALIGNANT MELANOMA
     Dosage: 150 MG, BID
     Route: 048
     Dates: start: 20190813
  15. DUROC [Concomitant]
     Indication: LUPUS NEPHRITIS
     Dosage: 200 MG, P.C (30MIN AFTER BREAKFAST) FOR 35 DAYS
     Route: 048
  16. GASMOTIN [Concomitant]
     Active Substance: MOSAPRIDE CITRATE
     Dosage: 5 MG, P.C (30MIN AFTER BREAKFAST) FOR 35 DAYS
     Route: 048

REACTIONS (5)
  - Oedema [Unknown]
  - Blood albumin decreased [Unknown]
  - Blood pressure increased [Unknown]
  - Weight increased [Unknown]
  - Proteinuria [Unknown]

NARRATIVE: CASE EVENT DATE: 201909
